FAERS Safety Report 15337678 (Version 1)
Quarter: 2018Q4

REPORT INFORMATION
  Report Type: Spontaneous
  Country: DE (occurrence: DE)
  Receive Date: 20180831
  Receipt Date: 20180831
  Transmission Date: 20190204
  Serious: Yes (Hospitalization, Other)
  Sender: FDA-Public Use
  Company Number: DE-AUROBINDO-AUR-APL-2018-012561

PATIENT
  Age: 80 Year
  Sex: Male
  Weight: 82 kg

DRUGS (32)
  1. XELODA [Suspect]
     Active Substance: CAPECITABINE
     Indication: COLORECTAL CANCER METASTATIC
     Dosage: DAILY DOSE: 3000 MG MILLIGRAM(S) EVERY 3 WEEK
     Route: 048
     Dates: start: 20150924, end: 20151118
  2. KEVATRIL [Concomitant]
     Active Substance: GRANISETRON HYDROCHLORIDE
     Indication: NAUSEA
     Dosage: DAILY DOSE: 1 DF DOSAGE FORM EVERY 3 WEEK
     Route: 042
     Dates: start: 20150924, end: 20160321
  3. SIMVASTATIN. [Concomitant]
     Active Substance: SIMVASTATIN
     Dosage: DAILY DOSE: 10 MG MILLIGRAM(S) EVERY DAY
     Route: 048
     Dates: start: 2015, end: 20151119
  4. ASPIRIN. [Concomitant]
     Active Substance: ASPIRIN
     Dosage: DAILY DOSE: 100 MG MILLIGRAM(S) EVERY DAY
     Route: 048
     Dates: start: 2001
  5. AVASTIN [Suspect]
     Active Substance: BEVACIZUMAB
     Indication: COLORECTAL CANCER METASTATIC
     Dosage: 615 MILLIGRAM, 3 WEEK
     Route: 042
     Dates: start: 20150924, end: 20150924
  6. FOSINORM [Concomitant]
     Indication: HYPERTENSION
     Dosage: 0.5 DOSAGE FORM, ONCE A DAY
     Route: 048
     Dates: start: 20010101
  7. AMLODIPIN                          /00972401/ [Concomitant]
     Active Substance: AMLODIPINE BESYLATE
     Indication: HYPERTENSION
     Dosage: 7.5 MILLIGRAM, ONCE A DAY
     Route: 048
     Dates: start: 20140701
  8. IRINOTECAN [Concomitant]
     Active Substance: IRINOTECAN
     Dosage: DAILY DOSE: 220.8 MG MILLIGRAM(S) EVERY 3 WEEK
     Route: 042
     Dates: start: 20160229
  9. FORTECORTIN                        /00016001/ [Concomitant]
     Active Substance: DEXAMETHASONE
     Indication: VOMITING
     Dosage: UNK
     Route: 065
  10. SIMVASTATIN. [Concomitant]
     Active Substance: SIMVASTATIN
     Indication: HYPERCHOLESTEROLAEMIA
     Dosage: 10 MILLIGRAM, ONCE A DAY
     Route: 048
     Dates: start: 20150101, end: 20151119
  11. OXALIPLATIN. [Suspect]
     Active Substance: OXALIPLATIN
     Indication: COLORECTAL CANCER METASTATIC
     Dosage: DAILY DOSE: 167 MG MILLIGRAM(S) EVERY 3 WEEK
     Route: 042
     Dates: start: 20160413, end: 20160504
  12. OXALIPLATIN. [Suspect]
     Active Substance: OXALIPLATIN
     Indication: COLORECTAL CANCER METASTATIC
     Dosage: DAILY DOSE: 120 MG MILLIGRAM(S) EVERY 3 WEEK
     Route: 042
     Dates: start: 20160609, end: 20160609
  13. AVASTIN [Suspect]
     Active Substance: BEVACIZUMAB
     Dosage: 495 MILLIGRAM, 3 WEEK
     Route: 042
     Dates: start: 20160321, end: 20160413
  14. ENOXAPARIN [Concomitant]
     Active Substance: ENOXAPARIN
     Indication: THROMBOSIS
     Dosage: DAILY DOSE: 0.4 ML MILLILITRE(S) EVERY DAY
     Route: 058
     Dates: start: 20151122, end: 20151202
  15. FOSINORM [Concomitant]
     Indication: HYPERTENSION
     Dosage: DAILY DOSE: 0.5 DF DOSAGE FORM EVERY DAY
     Route: 048
     Dates: start: 2001
  16. DIMENHYDRINAT [Concomitant]
     Active Substance: DIMENHYDRINATE
     Dosage: ()
  17. GRANISETRON [Concomitant]
     Active Substance: GRANISETRON
     Indication: NAUSEA
     Dosage: DAY 1 BEFORE CHEMOTHERAPY
     Route: 042
     Dates: start: 20160413
  18. KANAKION [Concomitant]
     Route: 042
     Dates: start: 20151120
  19. XELODA [Suspect]
     Active Substance: CAPECITABINE
     Indication: COLORECTAL CANCER METASTATIC
     Dosage: DAILY DOSE: 2500 MG MILLIGRAM(S) EVERY 3 WEEK
     Route: 048
     Dates: start: 20160118
  20. IRINOTECAN [Concomitant]
     Active Substance: IRINOTECAN
     Indication: COLORECTAL CANCER
     Dosage: DAILY DOSE: 323.2 MG MILLIGRAM(S) EVERY 3 WEEK
     Route: 042
     Dates: start: 20150924, end: 20151105
  21. KANAKION [Concomitant]
     Indication: PRODUCT USED FOR UNKNOWN INDICATION
     Route: 042
     Dates: start: 20151124
  22. AVASTIN [Suspect]
     Active Substance: BEVACIZUMAB
     Indication: PRODUCT USED FOR UNKNOWN INDICATION
     Dosage: 615 MILLIGRAM, 3 WEEK
     Route: 042
     Dates: start: 20151105, end: 20151105
  23. FORTECORTIN                        /00016001/ [Concomitant]
     Active Substance: DEXAMETHASONE
     Indication: NAUSEA
     Dosage: 10 MILLIGRAM, 3 WEEK
     Route: 042
     Dates: start: 20150924, end: 20160321
  24. GLIMEPIRID [Concomitant]
     Active Substance: GLIMEPIRIDE
     Dosage: DAILY DOSE: 2 MG MILLIGRAM(S) EVERY DAY
     Route: 048
     Dates: start: 2011, end: 20151127
  25. DIMENHYDRINAT [Concomitant]
     Active Substance: DIMENHYDRINATE
     Indication: VOMITING
     Dosage: UNK
     Route: 065
  26. DEXAMETHASON                       /00016001/ [Concomitant]
     Active Substance: DEXAMETHASONE
     Indication: NAUSEA
     Dosage: 8 MILLIGRAM, DAY 1 BEFORE CHEMOTHERAPY
     Route: 042
     Dates: start: 20160413
  27. ASPIRIN. [Concomitant]
     Active Substance: ASPIRIN
     Indication: PRODUCT USED FOR UNKNOWN INDICATION
     Dosage: 100 MILLIGRAM, ONCE A DAY
     Route: 048
  28. XELODA [Suspect]
     Active Substance: CAPECITABINE
     Indication: PRODUCT USED FOR UNKNOWN INDICATION
     Dosage: DAILY DOSE: 2000 MG MILLIGRAM(S) EVERY 3 WEEK
     Route: 048
     Dates: start: 20160609
  29. IRINOTECAN [Concomitant]
     Active Substance: IRINOTECAN
     Dosage: DAILY DOSE: 220 MG MILLIGRAM(S) EVERY 3 WEEK
     Route: 042
     Dates: start: 20160208, end: 20160208
  30. ATROPIN                            /00002801/ [Concomitant]
     Active Substance: ATROPINE
     Indication: CHOLINERGIC SYNDROME
     Dosage: UNK
     Route: 065
  31. ATROPIN                            /00002801/ [Concomitant]
     Active Substance: ATROPINE
     Indication: DIARRHOEA
     Dosage: 0.25 MILLIGRAM, 3 WEEK
     Route: 058
     Dates: start: 20150924, end: 20160321
  32. GLIMEPIRID [Concomitant]
     Active Substance: GLIMEPIRIDE
     Indication: DIABETES MELLITUS
     Dosage: 2 MILLIGRAM, ONCE A DAY
     Route: 048
     Dates: start: 20110101, end: 20151127

REACTIONS (7)
  - Weight decreased [Not Recovered/Not Resolved]
  - Decreased appetite [Recovered/Resolved]
  - Dehydration [Recovered/Resolved]
  - Hypokalaemia [Recovered/Resolved]
  - Diarrhoea [Recovered/Resolved]
  - Vomiting [Recovered/Resolved]
  - Proteinuria [Not Recovered/Not Resolved]

NARRATIVE: CASE EVENT DATE: 20150925
